FAERS Safety Report 24934688 (Version 1)
Quarter: 2025Q1

REPORT INFORMATION
  Report Type: Spontaneous
  Country: GB (occurrence: GB)
  Receive Date: 20250206
  Receipt Date: 20250206
  Transmission Date: 20250408
  Serious: No
  Sender: EXELIXIS
  Company Number: GB-IPSEN Group, Research and Development-2024-21159

PATIENT
  Age: 15 Year
  Sex: Male
  Weight: 73.9 kg

DRUGS (9)
  1. CABOMETYX [Suspect]
     Active Substance: CABOZANTINIB S-MALATE
     Indication: Osteosarcoma
     Dosage: 60 MG, QD
     Route: 048
     Dates: start: 20240805
  2. CABOMETYX [Suspect]
     Active Substance: CABOZANTINIB S-MALATE
     Indication: Off label use
     Dosage: 60 MG, QD
     Route: 048
     Dates: start: 20240909
  3. CABOMETYX [Suspect]
     Active Substance: CABOZANTINIB S-MALATE
     Route: 048
     Dates: start: 20241007
  4. CALCIUM CARBONATE\CHOLECALCIFEROL [Concomitant]
     Active Substance: CALCIUM CARBONATE\CHOLECALCIFEROL
  5. CYCLIZINE [Concomitant]
     Active Substance: CYCLIZINE
     Indication: Nausea
     Dosage: 50 MG, Q8HR
     Route: 048
  6. CYCLIZINE [Concomitant]
     Active Substance: CYCLIZINE
     Indication: Vomiting
  7. ONDANSETRON [Concomitant]
     Active Substance: ONDANSETRON
     Dosage: 8 MG, BID
     Route: 048
  8. ACETAMINOPHEN [Concomitant]
     Active Substance: ACETAMINOPHEN
     Indication: Pain
     Dosage: 250MG/5ML ORAL LIQUID, TAKE 20 ML (1 G TOTAL) BY MOUTH UP TO THREE TIMES EACH DAY FOR PAIN
     Route: 048
  9. Zerobase [Concomitant]
     Indication: Dry skin

REACTIONS (5)
  - Gastrointestinal toxicity [Unknown]
  - Hypertransaminasaemia [Unknown]
  - Proteinuria [Unknown]
  - Off label use [Unknown]
  - Off label use [Unknown]

NARRATIVE: CASE EVENT DATE: 20240805
